FAERS Safety Report 11682401 (Version 1)
Quarter: 2015Q4

REPORT INFORMATION
  Report Type: Spontaneous
  Country: US (occurrence: None)
  Receive Date: 20151028
  Receipt Date: 20151028
  Transmission Date: 20160304
  Serious: No
  Sender: FDA-Public Use
  Company Number: None

PATIENT
  Age: 36 Year
  Sex: Female
  Weight: 94 kg

DRUGS (8)
  1. ACETAMINOPHEN. [Concomitant]
     Active Substance: ACETAMINOPHEN
  2. MULTIVIT W/MINERALS + FA [Concomitant]
  3. ERGOCALCIFEROL. [Concomitant]
     Active Substance: ERGOCALCIFEROL
  4. AVIVA ACCU-CHECK TEST STRIP [Concomitant]
  5. VITAMIN-D SUPPLEMENT [Concomitant]
  6. LORATADINE. [Concomitant]
     Active Substance: LORATADINE
  7. METFORMIN [Concomitant]
     Active Substance: METFORMIN HYDROCHLORIDE
  8. PIOGLITAZONE. [Suspect]
     Active Substance: PIOGLITAZONE
     Indication: TYPE 2 DIABETES MELLITUS
     Dosage: ONE HALF TABLET (15 MG) QD ORAL
     Route: 048

REACTIONS (3)
  - Pelvic pain [None]
  - Muscle spasms [None]
  - Menstruation irregular [None]

NARRATIVE: CASE EVENT DATE: 20150907
